FAERS Safety Report 10528600 (Version 1)
Quarter: 2014Q4

REPORT INFORMATION
  Report Type: Spontaneous
  Country: US (occurrence: US)
  Receive Date: 20141020
  Receipt Date: 20141020
  Transmission Date: 20150528
  Serious: Yes (Hospitalization)
  Sender: FDA-Public Use
  Company Number: US-TEVA-515944USA

PATIENT
  Age: 45 Year
  Sex: Female

DRUGS (2)
  1. PHENTERMINE [Suspect]
     Active Substance: PHENTERMINE
     Dosage: 37.5MG 1-2 TIMES A DAY FOR 2 WEEKS
     Route: 065
  2. PHENTERMINE [Suspect]
     Active Substance: PHENTERMINE
     Dosage: 37.5MG DAILY 2-3 TIMES A WEEK
     Route: 065

REACTIONS (1)
  - Subarachnoid haemorrhage [Recovering/Resolving]
